FAERS Safety Report 9199077 (Version 1)
Quarter: 2013Q1

REPORT INFORMATION
  Report Type: Spontaneous
  Country: US (occurrence: None)
  Receive Date: 20130325
  Receipt Date: 20130325
  Transmission Date: 20140127
  Serious: No
  Sender: FDA-Public Use
  Company Number: 2013US-004614

PATIENT
  Age: 65 Year
  Sex: Female
  Weight: 73 kg

DRUGS (10)
  1. OMONTYS (PEGINESATIDE) SOLUTION FOR INJECTION [Suspect]
     Indication: NEPHROGENIC ANAEMIA
     Route: 058
     Dates: start: 20130215, end: 20130215
  2. VENOFER [Concomitant]
  3. DIOVAN (VALSARTAN) [Concomitant]
  4. HUMALOG (INSULIN LISPRO) [Concomitant]
  5. NPH ILETIN II (ISOPHANE INSULIN) [Concomitant]
  6. CALCITRIOL (CALCITRIOL) [Concomitant]
  7. FUROSEMIDE (FUROSEMIDE) [Concomitant]
  8. LIPITOR (ATORVASTATIN CALCIUM) [Concomitant]
  9. TYLENOL (PARACETAMOL) [Concomitant]
  10. EPOGEN (EPOETINA LFA) [Concomitant]

REACTIONS (2)
  - Arthralgia [None]
  - Headache [None]
